FAERS Safety Report 6218743-6 (Version None)
Quarter: 2009Q2

REPORT INFORMATION
  Report Type: 
  Country: None (occurrence: None)
  Receive Date: 20090608
  Receipt Date: 20090527
  Transmission Date: 20091009
  Serious: Yes (Hospitalization)
  Sender: FDA-Public Use
  Company Number: GB-AMGEN-QUU346052

PATIENT
  Sex: Female
  Weight: 58.3 kg

DRUGS (9)
  1. NEULASTA [Suspect]
     Indication: CHEMOTHERAPY
     Route: 058
     Dates: start: 20090425
  2. RITUXIMAB [Concomitant]
  3. CYCLOPHOSPHAMIDE [Concomitant]
  4. DOXORUBICIN HYDROCHLORIDE [Concomitant]
  5. VINCRISTINE [Concomitant]
  6. PREDNISOLONE [Concomitant]
  7. ONDANSETRON [Concomitant]
     Route: 048
     Dates: start: 20090424
  8. RANITIDINE [Concomitant]
     Route: 048
     Dates: start: 20090424
  9. ALLOPURINOL [Concomitant]
     Route: 048
     Dates: start: 20090424

REACTIONS (1)
  - NEUTROPENIC SEPSIS [None]
